FAERS Safety Report 7560433-1 (Version None)
Quarter: 2011Q2

REPORT INFORMATION
  Report Type: 
  Country: None (occurrence: None)
  Receive Date: 20110617
  Receipt Date: 20110617
  Transmission Date: 20111010
  Serious: Yes (Hospitalization, Other)
  Sender: FDA-Public Use
  Company Number: None

PATIENT
  Age: 59 Year
  Sex: Female
  Weight: 99.7913 kg

DRUGS (1)
  1. IVERMECTIN 3 MG [Suspect]
     Indication: STRONGYLOIDIASIS
     Dosage: 7 TABLETS 2 DAYS PO
     Route: 048
     Dates: start: 20110531, end: 20110601

REACTIONS (18)
  - TREMOR [None]
  - PERIPHERAL COLDNESS [None]
  - HYPERSOMNIA [None]
  - DIZZINESS [None]
  - BACK PAIN [None]
  - FEELING ABNORMAL [None]
  - PAIN IN EXTREMITY [None]
  - PAIN IN JAW [None]
  - CHILLS [None]
  - LOSS OF CONSCIOUSNESS [None]
  - TACHYCARDIA [None]
  - THINKING ABNORMAL [None]
  - PARAESTHESIA [None]
  - CHEST PAIN [None]
  - PALPITATIONS [None]
  - DYSPNOEA [None]
  - FATIGUE [None]
  - ASTHENIA [None]
